FAERS Safety Report 22384589 (Version 1)
Quarter: 2023Q2

REPORT INFORMATION
  Report Type: Spontaneous
  Country: US (occurrence: US)
  Receive Date: 20230530
  Receipt Date: 20230530
  Transmission Date: 20230721
  Serious: Yes (Other)
  Sender: FDA-Public Use
  Company Number: US-PFIZER INC-PV202300091536

PATIENT
  Age: 42 Year
  Sex: Female

DRUGS (1)
  1. KETAMINE HYDROCHLORIDE [Suspect]
     Active Substance: KETAMINE HYDROCHLORIDE
     Indication: Anaesthesia
     Dosage: UNK (AT LEAST A DECADE OF DAILY KETAMINE USE)

REACTIONS (3)
  - Biliary tract disorder [Unknown]
  - Cholestatic liver injury [Unknown]
  - Cholangitis sclerosing [Unknown]
